FAERS Safety Report 7462589-8 (Version None)
Quarter: 2011Q2

REPORT INFORMATION
  Report Type: 
  Country: None (occurrence: None)
  Receive Date: 20110506
  Receipt Date: 20110505
  Transmission Date: 20111010
  Serious: Yes (Other)
  Sender: FDA-Public Use
  Company Number: US-PFIZER INC-2011097306

PATIENT
  Sex: Male

DRUGS (1)
  1. CORDARONE [Suspect]

REACTIONS (2)
  - CARDIAC OPERATION [None]
  - VISION BLURRED [None]
